FAERS Safety Report 9671836 (Version 1)
Quarter: 2013Q4

REPORT INFORMATION
  Report Type: Spontaneous
  Country: US (occurrence: None)
  Receive Date: 20131105
  Receipt Date: 20131105
  Transmission Date: 20140711
  Serious: Yes (Other)
  Sender: FDA-Public Use
  Company Number: None

PATIENT
  Age: 63 Year
  Sex: Male
  Weight: 55 kg

DRUGS (14)
  1. VANCOMYCIN [Suspect]
     Dates: start: 20130930, end: 20130930
  2. FINASTERIDE [Concomitant]
  3. TERAZOSIN [Concomitant]
  4. FENTANYL [Concomitant]
  5. METOPROLOL TARTRATE [Concomitant]
  6. LORAZEPAM [Concomitant]
  7. QUETIAPINE [Concomitant]
  8. DIGOXIN [Concomitant]
  9. OMEPRAZOLE [Concomitant]
  10. CHOLECALCIFEROL [Concomitant]
  11. BUSPLRONE [Concomitant]
  12. HEPARIN [Concomitant]
  13. TIOTROPIUM [Concomitant]
  14. GUAIFENESIN [Concomitant]

REACTIONS (1)
  - Drug level decreased [None]
